FAERS Safety Report 5437163-5 (Version None)
Quarter: 2007Q3

REPORT INFORMATION
  Report Type: 
  Country: None (occurrence: None)
  Receive Date: 20070831
  Receipt Date: 20070827
  Transmission Date: 20080115
  Serious: Yes (Hospitalization)
  Sender: FDA-Public Use
  Company Number: US-ASTRAZENECA-2007UW16128

PATIENT
  Age: 3 Year
  Sex: Male
  Weight: 15 kg

DRUGS (9)
  1. PULMICORT RESPULES [Suspect]
     Indication: BRONCHIAL HYPERREACTIVITY
     Dosage: ON AND OFF FOR SIX MONTHS
     Route: 055
     Dates: start: 20061201, end: 20070501
  2. PULMICORT RESPULES [Suspect]
     Dosage: 0.5 MG/2ML 30 COUNT
     Route: 055
     Dates: start: 20070607, end: 20070612
  3. PULMICORT RESPULES [Suspect]
     Dosage: 0.5 MG/2ML 30 COUNT
     Route: 055
     Dates: start: 20070613
  4. ALBUTEROL [Concomitant]
  5. ATROVENT [Concomitant]
  6. ZANTAC 150 [Concomitant]
  7. STEROID [Concomitant]
     Route: 048
  8. MUCOLYTIC [Concomitant]
  9. ORAPRED [Concomitant]

REACTIONS (6)
  - CHEST DISCOMFORT [None]
  - COUGH [None]
  - DRUG INEFFECTIVE FOR UNAPPROVED INDICATION [None]
  - NASOPHARYNGITIS [None]
  - OXYGEN SATURATION DECREASED [None]
  - PHARMACEUTICAL PRODUCT COMPLAINT [None]
